FAERS Safety Report 21662933 (Version 1)
Quarter: 2022Q4

REPORT INFORMATION
  Report Type: Spontaneous
  Country: AU (occurrence: None)
  Receive Date: 20221130
  Receipt Date: 20221130
  Transmission Date: 20230113
  Serious: Yes (Other)
  Sender: FDA-Public Use
  Company Number: AU-Merck Healthcare KGaA-9367978

PATIENT
  Age: 78 Year
  Sex: Female

DRUGS (1)
  1. TEPOTINIB [Suspect]
     Active Substance: TEPOTINIB
     Indication: Lung neoplasm malignant
     Dates: start: 20220810

REACTIONS (6)
  - Metastases to bone [Unknown]
  - Spinal compression fracture [Unknown]
  - Fluid retention [Unknown]
  - Pleural effusion [Unknown]
  - Diarrhoea [Unknown]
  - Nausea [Unknown]
